FAERS Safety Report 4288929-9 (Version None)
Quarter: 2004Q1

REPORT INFORMATION
  Report Type: 
  Country: None (occurrence: None)
  Receive Date: 20040205
  Receipt Date: 20030602
  Transmission Date: 20041129
  Serious: Yes (Other)
  Sender: FDA-Public Use
  Company Number: 30014470-NA01-1

PATIENT
  Sex: Female
  Weight: 103.8737 kg

DRUGS (5)
  1. DIANEAL PD-2 W/ DEXTROSE 2.5% [Suspect]
     Indication: PERITONEAL DIALYSIS
     Dosage: 2 LITER, FREQUENCY, ROUTE, INTRAPERITONEAL
     Route: 033
     Dates: start: 20020101
  2. NEPHROCAPS [Concomitant]
  3. NIFEREX [Concomitant]
  4. POTASSIUM KCL [Concomitant]
  5. RENAGEL [Concomitant]

REACTIONS (1)
  - PERITONITIS BACTERIAL [None]
